FAERS Safety Report 9847790 (Version 2)
Quarter: 2014Q1

REPORT INFORMATION
  Report Type: Spontaneous
  Country: US (occurrence: US)
  Receive Date: 20140128
  Receipt Date: 20140317
  Transmission Date: 20141002
  Serious: No
  Sender: FDA-Public Use
  Company Number: US-BIOGENIDEC-2014BI006559

PATIENT
  Age: 49 Year
  Sex: Female

DRUGS (18)
  1. TECFIDERA [Suspect]
     Indication: MULTIPLE SCLEROSIS
     Route: 048
     Dates: start: 2013
  2. TECFIDERA [Suspect]
     Indication: MULTIPLE SCLEROSIS
     Route: 048
  3. TECFIDERA [Suspect]
     Indication: MULTIPLE SCLEROSIS
     Route: 048
  4. TECFIDERA [Suspect]
     Indication: MULTIPLE SCLEROSIS
     Route: 048
     Dates: start: 20140306
  5. TOPAMAX [Concomitant]
  6. MELOXICAM [Concomitant]
  7. RECLAST [Concomitant]
  8. TRAZODONE [Concomitant]
  9. PRILOSEC [Concomitant]
  10. VITAMIN B-12 [Concomitant]
  11. ASA [Concomitant]
  12. POTASSIUM [Concomitant]
  13. CLARITIN [Concomitant]
  14. CALCIUM [Concomitant]
  15. IRON [Concomitant]
  16. FOLIC ACID [Concomitant]
  17. TYLENOL [Concomitant]
  18. MAGNESIUM [Concomitant]

REACTIONS (5)
  - Prescribed underdose [Unknown]
  - Chest discomfort [Unknown]
  - Headache [Unknown]
  - White blood cell count decreased [Unknown]
  - Flushing [Unknown]
